FAERS Safety Report 7804356-9 (Version None)
Quarter: 2011Q4

REPORT INFORMATION
  Report Type: 
  Country: None (occurrence: None)
  Receive Date: 20111010
  Receipt Date: 20110927
  Transmission Date: 20120403
  Serious: Yes (Hospitalization)
  Sender: FDA-Public Use
  Company Number: US-BAYER-2011-007513

PATIENT
  Age: 34 Year
  Sex: Female

DRUGS (3)
  1. MAXALT [Concomitant]
     Indication: MIGRAINE
     Dosage: UNK
     Dates: start: 20030101
  2. VALTREX [Concomitant]
     Indication: GENITAL HERPES
     Dosage: UNK
     Dates: start: 20070101
  3. YAZ [Suspect]
     Indication: PREMENSTRUAL SYNDROME
     Dosage: UNK
     Dates: start: 20070201, end: 20091001

REACTIONS (5)
  - MUSCULOSKELETAL PAIN [None]
  - PULMONARY EMBOLISM [None]
  - PAIN [None]
  - EMOTIONAL DISTRESS [None]
  - CHEST PAIN [None]
